FAERS Safety Report 10078554 (Version 1)
Quarter: 2014Q2

REPORT INFORMATION
  Report Type: Spontaneous
  Country: US (occurrence: US)
  Receive Date: 20140415
  Receipt Date: 20140415
  Transmission Date: 20141212
  Serious: No
  Sender: FDA-Public Use
  Company Number: US-009507513-1404USA002170

PATIENT
  Sex: Female
  Weight: 65.76 kg

DRUGS (3)
  1. NEXPLANON [Suspect]
     Indication: CONTRACEPTION
     Dosage: UNK
     Route: 059
     Dates: start: 20130607
  2. NEXPLANON [Suspect]
     Indication: HAEMOSTASIS
  3. IRON (UNSPECIFIED) [Concomitant]

REACTIONS (5)
  - Menorrhagia [Recovered/Resolved]
  - Menorrhagia [Recovered/Resolved]
  - Menstruation normal [Unknown]
  - Hypomenorrhoea [Unknown]
  - Menstruation irregular [Unknown]
